FAERS Safety Report 6710676-1 (Version None)
Quarter: 2010Q2

REPORT INFORMATION
  Report Type: 
  Country: None (occurrence: None)
  Receive Date: 20100504
  Receipt Date: 20100504
  Transmission Date: 20101027
  Serious: No
  Sender: FDA-Public Use
  Company Number: None

PATIENT
  Age: 63 Year
  Sex: Female

DRUGS (1)
  1. DIOVAN 320MG NOVARTIS [Suspect]

REACTIONS (2)
  - HEADACHE [None]
  - HYPERTENSION [None]
